FAERS Safety Report 24526998 (Version 1)
Quarter: 2024Q4

REPORT INFORMATION
  Report Type: Report from Study
  Country: US (occurrence: US)
  Receive Date: 20241021
  Receipt Date: 20241021
  Transmission Date: 20250115
  Serious: Yes (Hospitalization)
  Sender: JAZZ
  Company Number: US-JAZZ PHARMACEUTICALS-2024-US-017732

PATIENT
  Sex: Female
  Weight: 66.67 kg

DRUGS (21)
  1. XYWAV [Suspect]
     Active Substance: CALCIUM OXYBATE\MAGNESIUM OXYBATE\POTASSIUM OXYBATE\SODIUM OXYBATE
     Indication: Narcolepsy
     Dosage: 4.5 GRAM, BID
  2. XYWAV [Suspect]
     Active Substance: CALCIUM OXYBATE\MAGNESIUM OXYBATE\POTASSIUM OXYBATE\SODIUM OXYBATE
     Indication: Cataplexy
     Dosage: 6 GRAM, BID
  3. XYWAV [Suspect]
     Active Substance: CALCIUM OXYBATE\MAGNESIUM OXYBATE\POTASSIUM OXYBATE\SODIUM OXYBATE
     Indication: Somnolence
  4. VALIUM [Suspect]
     Active Substance: DIAZEPAM
     Indication: Product used for unknown indication
     Dosage: UNK
  5. KLOR-CON M10 [Concomitant]
     Active Substance: POTASSIUM CHLORIDE
     Dosage: 0000
     Dates: start: 20121201
  6. LASIX [Concomitant]
     Active Substance: FUROSEMIDE
     Dosage: 0000
     Dates: start: 20150814
  7. LORATADINE [Concomitant]
     Active Substance: LORATADINE
     Dosage: 0000
     Dates: start: 20150707
  8. AMLODIPINE BESYLATE [Concomitant]
     Active Substance: AMLODIPINE BESYLATE
     Dosage: 0000
     Dates: start: 20150707
  9. ISOSORBIDE MONONITRATE [Concomitant]
     Active Substance: ISOSORBIDE MONONITRATE
     Dosage: 0000
     Dates: start: 20150707
  10. PRAZOSIN [Concomitant]
     Active Substance: PRAZOSIN\PRAZOSIN HYDROCHLORIDE
     Dosage: 0000
     Dates: start: 20150707
  11. CARVEDILOL [Concomitant]
     Active Substance: CARVEDILOL
     Dosage: 0000
     Dates: start: 20150707
  12. FOLIC ACID [Concomitant]
     Active Substance: FOLIC ACID
     Dosage: 0000
     Dates: start: 20150707
  13. ASPIRIN [Concomitant]
     Active Substance: ASPIRIN
     Dosage: 0000
     Dates: start: 20150707
  14. SERTRALINE HYDROCHLORIDE [Concomitant]
     Active Substance: SERTRALINE HYDROCHLORIDE
     Dosage: 0000
     Dates: start: 20150707
  15. LOSARTAN POTASSIUM [Concomitant]
     Active Substance: LOSARTAN POTASSIUM
     Dosage: 0000
     Dates: start: 20150707
  16. PRENATAL PLUS [Concomitant]
     Active Substance: .ALPHA.-TOCOPHEROL ACETATE, DL-\.BETA.-CAROTENE\ASCORBIC ACID\CALCIUM CARBONATE\CHOLECALCIFEROL\CUPR
     Dosage: 0000
     Dates: start: 20150707
  17. VITAMIN D3 [Concomitant]
     Active Substance: CHOLECALCIFEROL
     Dosage: 0000
     Dates: start: 20150707
  18. NOVOLOG [Concomitant]
     Active Substance: INSULIN ASPART
     Dosage: 0000
     Dates: start: 20150707
  19. OMEPRAZOLE [Concomitant]
     Active Substance: OMEPRAZOLE
     Dosage: 0000
     Dates: start: 20150707
  20. DULOXETINE HYDROCHLORIDE [Concomitant]
     Active Substance: DULOXETINE HYDROCHLORIDE
     Dosage: 0000
     Dates: start: 20231115
  21. TRAMADOL HCL [Concomitant]
     Active Substance: TRAMADOL HYDROCHLORIDE
     Dosage: 0000
     Dates: start: 20240829

REACTIONS (8)
  - Palpitations [Unknown]
  - Tooth extraction [Unknown]
  - Hangover [Unknown]
  - Somnolence [Unknown]
  - Feeling abnormal [Unknown]
  - Malaise [Unknown]
  - Product administration interrupted [Unknown]
  - Off label use [Unknown]
